FAERS Safety Report 4960895-X (Version None)
Quarter: 2006Q1

REPORT INFORMATION
  Report Type: 
  Country: None (occurrence: None)
  Receive Date: 20060109
  Receipt Date: 20051221
  Transmission Date: 20060701
  Serious: Yes (Hospitalization)
  Sender: FDA-Public Use
  Company Number: LUP-0019

PATIENT
  Sex: Male

DRUGS (2)
  1. CEFUROXIME AXETIL [Suspect]
     Indication: EAR INFECTION
     Dosage: 500 MG (250 MG, 2 IN 1 D), ORAL
     Route: 048
     Dates: start: 20051010, end: 20051015
  2. CIPRO-HC (CIPRO HC) (SUSPENSION) [Concomitant]

REACTIONS (1)
  - PANCREATITIS ACUTE [None]
